FAERS Safety Report 17708180 (Version 2)
Quarter: 2020Q2

REPORT INFORMATION
  Report Type: Spontaneous
  Country: GB (occurrence: GB)
  Receive Date: 20200425
  Receipt Date: 20200520
  Transmission Date: 20200714
  Serious: Yes (Other)
  Sender: FDA-Public Use
  Company Number: GB-ACCORD-179628

PATIENT
  Age: 61 Year
  Sex: Female

DRUGS (5)
  1. SENNA ALEXANDRINA [Concomitant]
     Active Substance: SENNA LEAF
     Dosage: NIGHT
     Route: 048
  2. QUETIAPINE. [Suspect]
     Active Substance: QUETIAPINE
     Indication: PRODUCT USED FOR UNKNOWN INDICATION
     Dosage: NIGHT.HAD NOT ADMINISTERING RECENTLY CONCERNS IT PREVENTS PATIENT WALKING
     Route: 048
     Dates: end: 20200228
  3. DOCUSATE [Concomitant]
     Active Substance: DOCUSATE
     Dosage: NIGHT
     Route: 048
  4. VALPROIC ACID. [Suspect]
     Active Substance: VALPROIC ACID
     Indication: PRODUCT USED FOR UNKNOWN INDICATION
     Route: 048
  5. THIAMINE. [Concomitant]
     Active Substance: THIAMINE
     Dosage: MORNING
     Route: 048

REACTIONS (3)
  - Hyponatraemia [Recovering/Resolving]
  - Intentional dose omission [Unknown]
  - Gait disturbance [Unknown]

NARRATIVE: CASE EVENT DATE: 20200228
